FAERS Safety Report 25159416 (Version 1)
Quarter: 2025Q2

REPORT INFORMATION
  Report Type: Spontaneous
  Country: BE (occurrence: BE)
  Receive Date: 20250404
  Receipt Date: 20250404
  Transmission Date: 20250716
  Serious: Yes (Other)
  Sender: Kenvue
  Company Number: BE-FAMHP-DHH-N2025-124353

PATIENT

DRUGS (12)
  1. CETIRIZINE HYDROCHLORIDE [Suspect]
     Active Substance: CETIRIZINE HYDROCHLORIDE
     Indication: Product used for unknown indication
     Dosage: IN THE MORNING; CETIRIZINE 10 MG
     Route: 065
  2. CLARITHROMYCIN [Suspect]
     Active Substance: CLARITHROMYCIN
     Indication: Bronchitis
     Dosage: 2 TABLETS AND 1 TAKEN WITH FOOD. 20-DAY TREATMENT
     Route: 048
     Dates: start: 20250313
  3. OTILONIUM BROMIDE [Suspect]
     Active Substance: OTILONIUM BROMIDE
     Indication: Abdominal pain upper
     Dosage: 30 MINUTES BEFORE THE MEAL
     Route: 065
  4. ACETAMINOPHEN\TRAMADOL HYDROCHLORIDE [Suspect]
     Active Substance: ACETAMINOPHEN\TRAMADOL HYDROCHLORIDE
     Indication: Abdominal pain upper
     Dosage: IN THE EVENING: 1/2 CO-DOSE TRAMADOL/PARACETAMOL 37.5/325MG
     Route: 065
  5. Enterol [Concomitant]
     Indication: Product used for unknown indication
     Dosage: IN THE MORNING
     Route: 065
  6. PANTOPRAZOLE [Concomitant]
     Active Substance: PANTOPRAZOLE
     Indication: Product used for unknown indication
     Dosage: IN THE MORNING; PANTOPRAZOLE TEVA 40 MG  GASTRO-RESISTANT  TABLET
     Route: 065
  7. DESOGESTREL [Concomitant]
     Active Substance: DESOGESTREL
     Indication: Product used for unknown indication
     Dosage: IN THE MORNING
     Route: 065
  8. LISINOPRIL [Concomitant]
     Active Substance: LISINOPRIL
     Indication: Product used for unknown indication
     Dosage: IN THE MORNING; 20 MG TABLET
     Route: 065
  9. BISOLVON [Concomitant]
     Active Substance: BROMHEXINE HYDROCHLORIDE
     Indication: Product used for unknown indication
     Dosage: 1/2 IN THE MORNING AND 1/2 IN THE EVENING; 8 MG TABLET
     Route: 065
  10. CALCIUM [Concomitant]
     Active Substance: CALCIUM
     Indication: Product used for unknown indication
     Dosage: IN THE EVENING: 2X 500MG
     Route: 065
  11. PRAMIPEXOLE [Concomitant]
     Active Substance: PRAMIPEXOLE
     Indication: Product used for unknown indication
     Dosage: IN THE MORNING
     Route: 065
  12. FLUTICASONE FUROATE\VILANTEROL TRIFENATATE [Concomitant]
     Active Substance: FLUTICASONE FUROATE\VILANTEROL TRIFENATATE
     Indication: Product used for unknown indication
     Dosage: IN THE EVENING; 184 MICROGRAMS/22 MICROGRAMS
     Route: 065

REACTIONS (3)
  - Urinary retention [Unknown]
  - Renal pain [Unknown]
  - Bladder pain [Unknown]

NARRATIVE: CASE EVENT DATE: 20250313
